FAERS Safety Report 14179183 (Version 1)
Quarter: 2017Q4

REPORT INFORMATION
  Report Type: Spontaneous
  Country: US (occurrence: US)
  Receive Date: 20171110
  Receipt Date: 20171110
  Transmission Date: 20180321
  Serious: Yes (Death, Other)
  Sender: FDA-Public Use
  Company Number: US-CIPLA LTD.-2017US19431

PATIENT

DRUGS (15)
  1. DECITABINE. [Suspect]
     Active Substance: DECITABINE
     Indication: RHABDOMYOSARCOMA RECURRENT
     Dosage: 20 MG/M2/ DAY FOR 5 DAYS PER 4-WEEK CYCLE
     Route: 065
  2. CYCLOPHOSPHAMIDE. [Suspect]
     Active Substance: CYCLOPHOSPHAMIDE
     Indication: ALVEOLAR RHABDOMYOSARCOMA
     Dosage: UNK, CUMULATIVE DOSE 9.6 G/M2
     Route: 065
  3. HYDROXYUREA. [Suspect]
     Active Substance: HYDROXYUREA
     Indication: RHABDOMYOSARCOMA RECURRENT
     Dosage: UNK
     Route: 065
  4. VINORELBINE [Suspect]
     Active Substance: VINORELBINE\VINORELBINE TARTRATE
     Indication: RHABDOMYOSARCOMA RECURRENT
     Dosage: UNK
     Route: 065
  5. IRINOTECAN [Suspect]
     Active Substance: IRINOTECAN
     Indication: ALVEOLAR RHABDOMYOSARCOMA
     Dosage: UNK
     Route: 065
  6. CIXUTUMUMAB [Suspect]
     Active Substance: CIXUTUMUMAB
     Indication: ALVEOLAR RHABDOMYOSARCOMA
     Dosage: UNK
     Route: 065
  7. VORINOSTAT [Suspect]
     Active Substance: VORINOSTAT
     Indication: RHABDOMYOSARCOMA RECURRENT
     Dosage: 200 MG, BID, FOR 14 DAYS PER CYCLE
     Route: 065
  8. DOXORUBICIN [Suspect]
     Active Substance: DOXORUBICIN
     Indication: ALVEOLAR RHABDOMYOSARCOMA
     Dosage: UNK, CUMULATIVE DOSE 375MG/M2
     Route: 065
  9. DACTINOMYCIN [Suspect]
     Active Substance: DACTINOMYCIN
     Indication: ALVEOLAR RHABDOMYOSARCOMA
     Dosage: UNK
     Route: 065
  10. ETOPOSIDE. [Suspect]
     Active Substance: ETOPOSIDE
     Indication: ALVEOLAR RHABDOMYOSARCOMA
     Dosage: UNK, CUMULATIVE DOSE 2.5 G/M2
     Route: 065
  11. IFOSFAMIDE. [Suspect]
     Active Substance: IFOSFAMIDE
     Indication: ALVEOLAR RHABDOMYOSARCOMA
     Dosage: UNK, 45 G/M2
     Route: 065
  12. CYCLOPHOSPHAMIDE. [Suspect]
     Active Substance: CYCLOPHOSPHAMIDE
     Dosage: UNK, CUMULATIVE DOSE 6 G/M2, 5 ADDITIONAL CYCLES
     Route: 065
  13. VINORELBINE [Suspect]
     Active Substance: VINORELBINE\VINORELBINE TARTRATE
     Dosage: UNK, 5 ADDITIONAL CYCLES
     Route: 065
  14. VINCRISTINE [Suspect]
     Active Substance: VINCRISTINE
     Indication: ALVEOLAR RHABDOMYOSARCOMA
     Dosage: UNK
     Route: 065
  15. CYCLOPHOSPHAMIDE. [Suspect]
     Active Substance: CYCLOPHOSPHAMIDE
     Indication: RHABDOMYOSARCOMA RECURRENT
     Dosage: UNK, CUMULATIVE DOSE 3.6 G/M2
     Route: 065

REACTIONS (8)
  - Death [Fatal]
  - Hypoaesthesia [Unknown]
  - Mental status changes [Unknown]
  - Respiratory distress [Unknown]
  - Disease progression [Unknown]
  - Acute myeloid leukaemia [Unknown]
  - Bone marrow failure [Unknown]
  - Pain [Unknown]
